FAERS Safety Report 7811074-X (Version None)
Quarter: 2011Q4

REPORT INFORMATION
  Report Type: 
  Country: None (occurrence: None)
  Receive Date: 20111013
  Receipt Date: 20110928
  Transmission Date: 20120403
  Serious: Yes (Hospitalization)
  Sender: FDA-Public Use
  Company Number: US-BAYER-2011-063366

PATIENT
  Age: 18 Year
  Sex: Female

DRUGS (4)
  1. YASMIN [Suspect]
     Indication: CONTRACEPTION
     Dosage: UNK
     Dates: start: 20080401, end: 20091101
  2. OMEPRAZOLE [Concomitant]
  3. TYLENOL W/ CODEINE NO. 3 [Concomitant]
     Indication: PAIN
  4. DROSPIRENONE AND ETHINYL ESTRADIOL [Suspect]
     Indication: CONTRACEPTION
     Dosage: UNK
     Dates: start: 20081101, end: 20090901

REACTIONS (7)
  - PAIN [None]
  - GALLBLADDER DISORDER [None]
  - GASTROINTESTINAL DISORDER [None]
  - EMOTIONAL DISTRESS [None]
  - ABDOMINAL PAIN [None]
  - PROCEDURAL PAIN [None]
  - CHOLECYSTITIS ACUTE [None]
